FAERS Safety Report 6212556-7 (Version None)
Quarter: 2009Q2

REPORT INFORMATION
  Report Type: 
  Country: None (occurrence: None)
  Receive Date: 20090603
  Receipt Date: 20090521
  Transmission Date: 20091009
  Serious: Yes (Hospitalization, Other)
  Sender: FDA-Public Use
  Company Number: PHHY2009JP19875

PATIENT
  Age: 79 Year
  Sex: Female

DRUGS (6)
  1. DIOVAN HCT [Suspect]
     Indication: HYPERTENSION
     Dosage: 1 DF DAILY
     Route: 048
     Dates: start: 20090324
  2. DIOVAN [Suspect]
     Indication: HYPERTENSION
     Dosage: 80 MG/DAY
     Dates: end: 20090324
  3. LASIX [Concomitant]
     Indication: HYPERTENSION
     Dosage: 20 MG DAILY
     Dates: end: 20090324
  4. WARFARIN [Concomitant]
     Dosage: 2 MG, UNK
     Route: 048
     Dates: start: 20090324
  5. ARTIST [Concomitant]
     Dosage: 2.5 MG, UNK
     Route: 048
     Dates: start: 20090324
  6. ASPIRIN [Concomitant]
     Dosage: UNK
     Route: 048
     Dates: end: 20090323

REACTIONS (3)
  - BLOOD PRESSURE INCREASED [None]
  - DRUG INEFFECTIVE [None]
  - MYOCARDIAL INFARCTION [None]
